FAERS Safety Report 16749884 (Version 2)
Quarter: 2020Q3

REPORT INFORMATION
  Report Type: Report from Study
  Country: US (occurrence: US)
  Receive Date: 20190828
  Receipt Date: 20190830
  Transmission Date: 20201105
  Serious: Yes (Hospitalization)
  Sender: FDA-Public Use
  Company Number: US-JNJFOC-20190813027

PATIENT
  Age: 49 Year
  Sex: Male
  Weight: 93.98 kg

DRUGS (23)
  1. OXYCODONE [Concomitant]
     Active Substance: OXYCODONE
     Indication: PAIN
     Dosage: Q4H, PRN
     Route: 048
  2. PROMETHAZINE [Concomitant]
     Active Substance: PROMETHAZINE HYDROCHLORIDE
     Indication: VOMITING
  3. SODIUM BICARBONATE. [Concomitant]
     Active Substance: SODIUM BICARBONATE
     Dosage: 150 MEQ/D5W 1000ML 150MEQ: 125 ML/HOUR
     Route: 042
  4. SODIUM BICARBONATE. [Concomitant]
     Active Substance: SODIUM BICARBONATE
     Route: 048
  5. MORPHINE [Concomitant]
     Active Substance: MORPHINE
     Indication: PAIN
     Dosage: 2 MG, 1 ML, Q4H
     Route: 042
  6. VITAMIN B12 [Concomitant]
     Active Substance: CYANOCOBALAMIN
     Dosage: 1000 MCG, 1 ML
     Route: 030
  7. ACETAMINOPHEN. [Concomitant]
     Active Substance: ACETAMINOPHEN
     Indication: PAIN
     Dosage: 2 TAB, Q4H, PRN
     Route: 048
  8. LABETALOL [Concomitant]
     Active Substance: LABETALOL\LABETALOL HYDROCHLORIDE
     Indication: BLOOD PRESSURE ABNORMAL
     Dosage: 20 MG, 4ML, IV PUSH, Q6H,
     Route: 042
  9. ONDANSETRON [Concomitant]
     Active Substance: ONDANSETRON
     Indication: NAUSEA
     Dosage: 4 MG, 2 ML, Q6H,
     Route: 042
  10. ONDANSETRON [Concomitant]
     Active Substance: ONDANSETRON
     Indication: VOMITING
  11. PROMETHAZINE [Concomitant]
     Active Substance: PROMETHAZINE HYDROCHLORIDE
     Indication: NAUSEA
     Dosage: 6.25 MG, Q6H, PRN
     Route: 042
  12. DOCUSATE [Concomitant]
     Active Substance: DOCUSATE
     Route: 048
  13. MELATONIN [Concomitant]
     Active Substance: MELATONIN
     Indication: INSOMNIA
     Dosage: BEDTIME
     Route: 048
  14. NYSTATIN. [Concomitant]
     Active Substance: NYSTATIN
     Dosage: 10000 UNITS/ML, 50000 UNITS, 5 ML,
     Route: 048
  15. RITUXIMAB. [Suspect]
     Active Substance: RITUXIMAB
     Indication: MANTLE CELL LYMPHOMA
     Route: 042
     Dates: start: 201908
  16. METFORMIN [Concomitant]
     Active Substance: METFORMIN HYDROCHLORIDE
     Indication: DIABETES MELLITUS
     Dates: start: 20190605
  17. DEXTROSE. [Concomitant]
     Active Substance: DEXTROSE
     Indication: BLOOD GLUCOSE DECREASED
     Dosage: (1 AMP EQUAL TO 25 GRAMS): 12.5 G, 25 ML,
     Route: 042
  18. IBRUTINIB [Suspect]
     Active Substance: IBRUTINIB
     Indication: MANTLE CELL LYMPHOMA
     Route: 048
     Dates: start: 20190627, end: 20190808
  19. ZOSYN [Concomitant]
     Active Substance: PIPERACILLIN SODIUM\TAZOBACTAM SODIUM
     Dosage: 3.375G, 15ML/HOUR, IVPB,
  20. MAALOX ANTACID [Concomitant]
     Active Substance: ALUMINUM HYDROXIDE\DIMETHICONE\MAGNESIUM HYDROXIDE
     Indication: DYSPEPSIA
     Dosage: Q4H, PRN
     Route: 048
  21. GLUCOSE [Concomitant]
     Active Substance: DEXTROSE
     Indication: BLOOD GLUCOSE DECREASED
     Route: 048
  22. PANTOPRAZOLE [Concomitant]
     Active Substance: PANTOPRAZOLE
     Route: 048
  23. POTASSIUM CHLORIDE. [Concomitant]
     Active Substance: POTASSIUM CHLORIDE
     Dosage: 20 MEQ
     Route: 048

REACTIONS (1)
  - Metabolic acidosis [Recovering/Resolving]

NARRATIVE: CASE EVENT DATE: 20190808
